FAERS Safety Report 18096229 (Version 1)
Quarter: 2020Q3

REPORT INFORMATION
  Report Type: Spontaneous
  Country: CN (occurrence: CN)
  Receive Date: 20200730
  Receipt Date: 20200730
  Transmission Date: 20201103
  Serious: Yes (Other)
  Sender: FDA-Public Use
  Company Number: CN-BAYER-2020-148673

PATIENT
  Age: 75 Year
  Sex: Male

DRUGS (12)
  1. SINTILIMAB. [Concomitant]
     Active Substance: SINTILIMAB
     Indication: HEPATOCELLULAR CARCINOMA
     Dosage: 200 MG, QD
     Route: 041
     Dates: start: 20200609, end: 20200609
  2. SINTILIMAB. [Concomitant]
     Active Substance: SINTILIMAB
     Indication: HEPATOCELLULAR CARCINOMA
     Dosage: 200 MG, QD
     Route: 041
     Dates: start: 20200228, end: 20200228
  3. SINTILIMAB. [Concomitant]
     Active Substance: SINTILIMAB
     Indication: HEPATOCELLULAR CARCINOMA
     Dosage: 200 MG, QD
     Route: 041
     Dates: start: 20200324, end: 20200324
  4. SINTILIMAB. [Concomitant]
     Active Substance: SINTILIMAB
     Indication: HEPATOCELLULAR CARCINOMA
     Dosage: 200 MG, QD
     Route: 041
     Dates: start: 20200416, end: 20200416
  5. SINTILIMAB. [Concomitant]
     Active Substance: SINTILIMAB
     Indication: HEPATOCELLULAR CARCINOMA
     Dosage: 200 MG, QD
     Route: 041
     Dates: start: 20200514, end: 20200514
  6. SINTILIMAB. [Concomitant]
     Active Substance: SINTILIMAB
     Indication: HEPATOCELLULAR CARCINOMA
     Dosage: 200 MG, QD
     Route: 041
     Dates: start: 20191212, end: 20191212
  7. SINTILIMAB. [Concomitant]
     Active Substance: SINTILIMAB
     Indication: HEPATOCELLULAR CARCINOMA
     Dosage: 200 MG, QD
     Route: 041
     Dates: start: 20200109, end: 20200109
  8. NEXAVAR [Suspect]
     Active Substance: SORAFENIB
     Indication: HEPATOCELLULAR CARCINOMA
     Dosage: 400 MG, BID
     Route: 048
     Dates: start: 20190903
  9. NEXAVAR [Suspect]
     Active Substance: SORAFENIB
     Indication: METASTASES TO LUNG
  10. SINTILIMAB. [Concomitant]
     Active Substance: SINTILIMAB
     Indication: HEPATOCELLULAR CARCINOMA
     Dosage: 200 MG, QD
     Route: 041
     Dates: start: 20191118, end: 20191118
  11. SINTILIMAB. [Concomitant]
     Active Substance: SINTILIMAB
     Indication: HEPATOCELLULAR CARCINOMA
     Dosage: 200 MG, QD
     Route: 041
     Dates: start: 20191023, end: 20191023
  12. SINTILIMAB. [Concomitant]
     Active Substance: SINTILIMAB
     Indication: HEPATOCELLULAR CARCINOMA
     Dosage: 200 MG, QD
     Route: 041
     Dates: start: 20200201, end: 20200201

REACTIONS (7)
  - Pain of skin [Recovering/Resolving]
  - Erythema [Recovering/Resolving]
  - Hypothyroidism [Recovering/Resolving]
  - Peripheral swelling [Recovering/Resolving]
  - Palmar-plantar erythrodysaesthesia syndrome [Recovering/Resolving]
  - Rash [Recovering/Resolving]
  - Hepatocellular carcinoma [None]

NARRATIVE: CASE EVENT DATE: 20200513
